FAERS Safety Report 8056138-3 (Version None)
Quarter: 2012Q1

REPORT INFORMATION
  Report Type: 
  Country: None (occurrence: None)
  Receive Date: 20120119
  Receipt Date: 20120116
  Transmission Date: 20120608
  Serious: No
  Sender: FDA-Public Use
  Company Number: US-PFIZER INC-2012012219

PATIENT
  Sex: Female
  Weight: 57.143 kg

DRUGS (10)
  1. IRON [Concomitant]
     Dosage: UNK
  2. GABAPENTIN [Concomitant]
     Dosage: UNK
  3. CALCIUM [Concomitant]
     Dosage: UNK
  4. ADVAIR DISKUS 100/50 [Concomitant]
     Dosage: UNK
  5. LEVOTHYROXINE [Concomitant]
     Dosage: UNK
  6. VITAMIN D [Concomitant]
     Dosage: UNK
  7. VFEND [Suspect]
     Indication: ASPERGILLOSIS
     Dosage: 200 MG
     Route: 048
     Dates: start: 20111201, end: 20120101
  8. AZITHROMYCIN [Concomitant]
     Dosage: UNK
  9. SPIRIVA [Concomitant]
     Dosage: UNK
  10. ALBUTEROL [Concomitant]
     Dosage: UNK

REACTIONS (3)
  - BLOOD IMMUNOGLOBULIN M DECREASED [None]
  - DRUG INTOLERANCE [None]
  - BLOOD THYROID STIMULATING HORMONE DECREASED [None]
